FAERS Safety Report 16386672 (Version 4)
Quarter: 2020Q3

REPORT INFORMATION
  Report Type: Spontaneous
  Country: US (occurrence: US)
  Receive Date: 20190604
  Receipt Date: 20200922
  Transmission Date: 20201102
  Serious: Yes (Hospitalization)
  Sender: FDA-Public Use
  Company Number: US-ROCHE-2330928

PATIENT
  Sex: Male

DRUGS (12)
  1. VITAMIN B [Concomitant]
     Active Substance: VITAMIN B
  2. ESBRIET [Suspect]
     Active Substance: PIRFENIDONE
     Indication: INTERSTITIAL LUNG DISEASE
     Route: 048
     Dates: start: 201905
  3. MIRAPEX [Concomitant]
     Active Substance: PRAMIPEXOLE DIHYDROCHLORIDE
  4. PAXIL [Concomitant]
     Active Substance: PAROXETINE HYDROCHLORIDE
  5. XANAX [Concomitant]
     Active Substance: ALPRAZOLAM
  6. OMEPRAZOLE. [Concomitant]
     Active Substance: OMEPRAZOLE
  7. CO Q 100 [Concomitant]
  8. SYMBICORT [Concomitant]
     Active Substance: BUDESONIDE\FORMOTEROL FUMARATE DIHYDRATE
     Dosage: 160?40.5 MCG/
  9. FISH OIL [Concomitant]
     Active Substance: FISH OIL
  10. IRON [Concomitant]
     Active Substance: IRON
     Dosage: TAB 325 (65 MG
  11. LISINOPRIL. [Concomitant]
     Active Substance: LISINOPRIL
  12. ATORVASTATIN [Concomitant]
     Active Substance: ATORVASTATIN

REACTIONS (10)
  - Cough [Not Recovered/Not Resolved]
  - Stress [Not Recovered/Not Resolved]
  - Dyspnoea [Not Recovered/Not Resolved]
  - Asthenia [Unknown]
  - Insomnia [Unknown]
  - Arthralgia [Not Recovered/Not Resolved]
  - Oxygen consumption increased [Unknown]
  - Back injury [Not Recovered/Not Resolved]
  - Wheezing [Not Recovered/Not Resolved]
  - Depression [Unknown]
